FAERS Safety Report 4607351-6 (Version None)
Quarter: 2005Q1

REPORT INFORMATION
  Report Type: 
  Country: None (occurrence: None)
  Receive Date: 20050311
  Receipt Date: 20050311
  Transmission Date: 20050727
  Serious: Yes (Life-Threatening)
  Sender: FDA-Public Use
  Company Number: None

PATIENT
  Age: 54 Year
  Sex: Male
  Weight: 205 kg

DRUGS (1)
  1. ABILIFY [Suspect]
     Dosage: 5 MG/DAY
     Dates: start: 20050222, end: 20050227

REACTIONS (3)
  - ARRHYTHMIA [None]
  - CHEST PAIN [None]
  - TACHYCARDIA [None]
